FAERS Safety Report 8778903 (Version 2)
Quarter: 2012Q4

REPORT INFORMATION
  Report Type: 
  Country: US (occurrence: US)
  Receive Date: 20120912
  Receipt Date: 20121026
  Transmission Date: 20130627
  Serious: Yes (Other)
  Sender: FDA-Public Use
  Company Number: US-NAPPMUNDI-USA-2012-0092632

PATIENT
  Age: 58 Year
  Sex: Female

DRUGS (1)
  1. OXYCONTIN (NDA 22-272) [Suspect]
     Indication: PAIN
     Dosage: 60 mg, 2 tabs in AM and 1 tab in PM
     Route: 048
     Dates: start: 20071026

REACTIONS (14)
  - Drug withdrawal syndrome [Recovered/Resolved]
  - Weight decreased [Not Recovered/Not Resolved]
  - Loss of consciousness [Unknown]
  - Hypertension [Unknown]
  - Fall [Recovered/Resolved]
  - Aphagia [Unknown]
  - Heart rate decreased [Unknown]
  - Head injury [Unknown]
  - Back pain [Unknown]
  - Joint injury [Unknown]
  - Nausea [Unknown]
  - Asthenia [Unknown]
  - Vomiting [Unknown]
  - Dizziness [Unknown]
